FAERS Safety Report 8418697-8 (Version None)
Quarter: 2012Q2

REPORT INFORMATION
  Report Type: 
  Country: None (occurrence: None)
  Receive Date: 20120607
  Receipt Date: 20120605
  Transmission Date: 20120825
  Serious: Yes (Death, Other)
  Sender: FDA-Public Use
  Company Number: VE-PFIZER INC-2012129128

PATIENT
  Age: 65 Year
  Sex: Male

DRUGS (4)
  1. ZOLOFT [Suspect]
     Indication: DEPRESSION
     Dosage: UNK, DAILY
     Route: 048
  2. RASILEZ [Concomitant]
     Indication: HYPERTENSION
     Dosage: UNK
     Route: 048
  3. AMLODIPINE/VALSARTAN [Concomitant]
     Indication: HYPERTENSION
     Dosage: UNK
     Route: 048
  4. JANUVIA [Concomitant]
     Indication: DIABETES MELLITUS
     Dosage: UNK
     Route: 048

REACTIONS (3)
  - DIABETIC FOOT INFECTION [None]
  - RESPIRATORY ARREST [None]
  - DIABETIC FOOT [None]
